FAERS Safety Report 14111223 (Version 2)
Quarter: 2017Q4

REPORT INFORMATION
  Report Type: Spontaneous
  Country: CM (occurrence: CM)
  Receive Date: 20171020
  Receipt Date: 20171121
  Transmission Date: 20180321
  Serious: Yes (Other)
  Sender: FDA-Public Use
  Company Number: CM-GLAXOSMITHKLINE-CM2017GSK160814

PATIENT
  Age: 49 Year
  Sex: Female

DRUGS (2)
  1. VOLTFAST [Suspect]
     Active Substance: DICLOFENAC POTASSIUM
     Indication: MIGRAINE
     Dosage: 5 DF, WE (ONCE A WEEK THREE TO FIVE SACHETS EVERY TWO WEEKS)
     Route: 048
  2. EFFERALGAN [Concomitant]
     Active Substance: ACETAMINOPHEN
     Indication: PRODUCT USED FOR UNKNOWN INDICATION
     Dosage: UNK
     Route: 065

REACTIONS (2)
  - Gastritis [Unknown]
  - Abdominal pain upper [Unknown]
